FAERS Safety Report 18196449 (Version 2)
Quarter: 2020Q3

REPORT INFORMATION
  Report Type: Spontaneous
  Country: FR (occurrence: FR)
  Receive Date: 20200825
  Receipt Date: 20200829
  Transmission Date: 20201103
  Serious: Yes (Other)
  Sender: FDA-Public Use
  Company Number: FR-BAXTER-2020BAX016844

PATIENT
  Age: 63 Year
  Sex: Male
  Weight: 70 kg

DRUGS (10)
  1. VINCRISTINE SULFATE. [Suspect]
     Active Substance: VINCRISTINE SULFATE
     Indication: LYMPHOCYTIC LEUKAEMIA
     Dosage: 1 MG, CYCLICAL
     Route: 041
     Dates: start: 20190704, end: 20191022
  2. ZELITREX [Concomitant]
     Active Substance: VALACYCLOVIR HYDROCHLORIDE
     Indication: PRODUCT USED FOR UNKNOWN INDICATION
     Route: 048
  3. XANAX [Concomitant]
     Active Substance: ALPRAZOLAM
     Indication: PRODUCT USED FOR UNKNOWN INDICATION
     Route: 048
  4. DOXIL [Suspect]
     Active Substance: DOXORUBICIN HYDROCHLORIDE
     Indication: LYMPHOCYTIC LEUKAEMIA
     Dosage: 90 MG, CYCLICAL
     Route: 041
     Dates: start: 20190704, end: 20191022
  5. PREDNISONE. [Suspect]
     Active Substance: PREDNISONE
     Indication: LYMPHOCYTIC LEUKAEMIA
     Route: 065
  6. ENDOXAN 1000 MG, POUDRE POUR SOLUTIONINJECTABLE [Suspect]
     Active Substance: CYCLOPHOSPHAMIDE
     Indication: LYMPHOCYTIC LEUKAEMIA
     Dosage: 1400 MG, CYCLICAL
     Route: 041
     Dates: start: 20190704, end: 20191022
  7. RITUXIMAB (MAMMAL/HAMSTER/CHO CELLS) [Suspect]
     Active Substance: RITUXIMAB
     Indication: LYMPHOCYTIC LEUKAEMIA
     Dosage: 700 MG
     Route: 041
     Dates: start: 20190704, end: 20191022
  8. SPECIAFOLDINE [Concomitant]
     Active Substance: FOLIC ACID
     Indication: PRODUCT USED FOR UNKNOWN INDICATION
     Route: 048
  9. ATORVASTATIN [Concomitant]
     Active Substance: ATORVASTATIN
     Indication: PRODUCT USED FOR UNKNOWN INDICATION
     Route: 048
  10. BACTRIM [Concomitant]
     Active Substance: SULFAMETHOXAZOLE\TRIMETHOPRIM
     Indication: PRODUCT USED FOR UNKNOWN INDICATION
     Dosage: DOSAGE FORM: TABLETS
     Route: 048

REACTIONS (1)
  - Ejection fraction decreased [Not Recovered/Not Resolved]

NARRATIVE: CASE EVENT DATE: 20190918
